FAERS Safety Report 16969347 (Version 4)
Quarter: 2019Q4

REPORT INFORMATION
  Report Type: Spontaneous
  Country: JP (occurrence: JP)
  Receive Date: 20191029
  Receipt Date: 20191212
  Transmission Date: 20200122
  Serious: Yes (Death, Hospitalization, Other)
  Sender: FDA-Public Use
  Company Number: JP-ADVANZ PHARMA-201910001359

PATIENT

DRUGS (14)
  1. DOPASTON [Concomitant]
     Active Substance: LEVODOPA
     Indication: TREMOR
     Dosage: 50 MG, QD
  2. ZONISAMIDE. [Suspect]
     Active Substance: ZONISAMIDE
     Dosage: TRERIEF) WAS INCREASED TO TWICE DAILY, TABLET
     Route: 048
     Dates: start: 20160825, end: 20170920
  3. MIRAPEX [Concomitant]
     Active Substance: PRAMIPEXOLE DIHYDROCHLORIDE
     Indication: PRODUCT USED FOR UNKNOWN INDICATION
     Route: 065
  4. ZONISAMIDE. [Suspect]
     Active Substance: ZONISAMIDE
     Indication: PARKINSON^S DISEASE
     Dosage: , DOSE AND FREQUENCY UNKNOWNTABLET
     Route: 048
  5. CRESTOR [Concomitant]
     Active Substance: ROSUVASTATIN CALCIUM
     Indication: PRODUCT USED FOR UNKNOWN INDICATION
     Route: 065
  6. NEUPRO [Concomitant]
     Active Substance: ROTIGOTINE
     Indication: TREMOR
  7. ZONISAMIDE. [Suspect]
     Active Substance: ZONISAMIDE
     Dosage: TRERIEF) WAS DISCONTINUED. (EXCEGRAN) WAS INCREASED TO 100 MG TWICE DAILY, TABLET
     Route: 048
     Dates: start: 20170921, end: 2017
  8. MENESIT [Concomitant]
     Active Substance: CARBIDOPA\LEVODOPA
     Indication: PRODUCT USED FOR UNKNOWN INDICATION
     Dosage: 2-2-1 (MORNING-NOON-AFTER DINNER)
     Route: 048
  9. ZONISAMIDE. [Suspect]
     Active Substance: ZONISAMIDE
     Dosage: TRERIEF) WAS ADDED, DOSE AND FREQUENCY UNKNOWN, TABLET
     Route: 048
     Dates: start: 20150324, end: 20160824
  10. LANDSEN [Suspect]
     Active Substance: CLONAZEPAM
     Indication: TREMOR
     Route: 065
  11. MAGNESIUM OXIDE. [Concomitant]
     Active Substance: MAGNESIUM OXIDE
     Indication: PRODUCT USED FOR UNKNOWN INDICATION
     Route: 065
  12. COMTAN [Concomitant]
     Active Substance: ENTACAPONE
     Indication: PRODUCT USED FOR UNKNOWN INDICATION
     Route: 065
  13. SYMMETREL [Concomitant]
     Active Substance: AMANTADINE HYDROCHLORIDE
     Indication: PRODUCT USED FOR UNKNOWN INDICATION
     Route: 065
  14. HORIZON [Concomitant]
     Active Substance: DIAZEPAM
     Indication: SEIZURE

REACTIONS (4)
  - Hypohidrosis [Recovered/Resolved]
  - Colitis ischaemic [Fatal]
  - Heat illness [Recovered/Resolved]
  - Thirst [Unknown]

NARRATIVE: CASE EVENT DATE: 20160825
